FAERS Safety Report 23170474 (Version 1)
Quarter: 2023Q4

REPORT INFORMATION
  Report Type: Spontaneous
  Country: SK (occurrence: SK)
  Receive Date: 20231110
  Receipt Date: 20231110
  Transmission Date: 20240110
  Serious: Yes (Other)
  Sender: FDA-Public Use
  Company Number: SK-002147023-NVSC2023SK210855

PATIENT
  Sex: Female

DRUGS (1)
  1. COSENTYX [Suspect]
     Active Substance: SECUKINUMAB
     Indication: Hidradenitis
     Dosage: 150 MG
     Route: 065
     Dates: start: 20230502, end: 20230926

REACTIONS (7)
  - Eczema [Recovering/Resolving]
  - Swelling face [Recovering/Resolving]
  - Atopy [Recovering/Resolving]
  - Rhinitis [Recovering/Resolving]
  - Conjunctivitis [Recovering/Resolving]
  - Condition aggravated [Recovering/Resolving]
  - Hidradenitis [Recovering/Resolving]

NARRATIVE: CASE EVENT DATE: 20230510
